FAERS Safety Report 12901213 (Version 1)
Quarter: 2016Q4

REPORT INFORMATION
  Report Type: Spontaneous
  Country: FR (occurrence: FR)
  Receive Date: 20161101
  Receipt Date: 20161101
  Transmission Date: 20170207
  Serious: Yes (Life-Threatening, Other)
  Sender: FDA-Public Use
  Company Number: FR-GILEAD-2016-0240423

PATIENT
  Age: 69 Year
  Sex: Female

DRUGS (21)
  1. SOVALDI [Suspect]
     Active Substance: SOFOSBUVIR
     Indication: HEPATITIS C
     Dosage: 400 MG, UNK
     Route: 048
     Dates: start: 20140715, end: 20150115
  2. GAVISCON                           /00237601/ [Concomitant]
     Active Substance: ALUMINUM HYDROXIDE\MAGNESIUM CARBONATE
  3. CALCIPARINE [Concomitant]
     Active Substance: HEPARIN CALCIUM
  4. LOPERAMIDE [Concomitant]
     Active Substance: LOPERAMIDE
  5. ACTISKENAN [Concomitant]
     Active Substance: MORPHINE SULFATE
  6. INEGY [Concomitant]
     Active Substance: EZETIMIBE\SIMVASTATIN
  7. DAKLINZA [Suspect]
     Active Substance: DACLATASVIR
     Indication: HEPATITIS C
     Dosage: UNK
     Route: 048
     Dates: start: 20140715, end: 20150115
  8. RAMIPRIL. [Suspect]
     Active Substance: RAMIPRIL
     Indication: HYPERTENSION
     Dosage: 5 MG, BID
     Route: 048
     Dates: end: 20151126
  9. DUROGESIC [Concomitant]
     Active Substance: FENTANYL
  10. ZOPHREN                            /00955301/ [Concomitant]
     Active Substance: ONDANSETRON
  11. TEMERIT [Suspect]
     Active Substance: NEBIVOLOL
     Indication: PALPITATIONS
     Dosage: 5 MG, BID
     Route: 048
     Dates: end: 20151123
  12. ADALAT [Suspect]
     Active Substance: NIFEDIPINE
     Indication: RAYNAUD^S PHENOMENON
     Dosage: 20 MG, BID
     Route: 048
     Dates: start: 20151102, end: 20151123
  13. ALDACTONE [Suspect]
     Active Substance: SPIRONOLACTONE
     Indication: HYPERTENSION
     Dosage: 75 MG, TID
     Route: 065
     Dates: end: 20151126
  14. ADENURIC [Concomitant]
     Active Substance: FEBUXOSTAT
  15. NATISPRAY [Concomitant]
     Active Substance: NITROGLYCERIN
  16. ILARIS [Concomitant]
     Active Substance: CANAKINUMAB
  17. KALEORID [Concomitant]
     Active Substance: POTASSIUM CHLORIDE
  18. ALPRAZOLAM. [Concomitant]
     Active Substance: ALPRAZOLAM
  19. TARDYFERON [Concomitant]
     Active Substance: FERROUS SULFATE
  20. TIORFAN [Concomitant]
     Active Substance: RACECADOTRIL
  21. DOXYCYCLINE. [Concomitant]
     Active Substance: DOXYCYCLINE

REACTIONS (3)
  - Bradycardia [Recovered/Resolved]
  - Cardiac failure [Recovered/Resolved]
  - Hypotension [Recovered/Resolved]

NARRATIVE: CASE EVENT DATE: 20151124
